FAERS Safety Report 11180820 (Version 1)
Quarter: 2015Q2

REPORT INFORMATION
  Report Type: Report from Study
  Country: US (occurrence: US)
  Receive Date: 20150611
  Receipt Date: 20150611
  Transmission Date: 20150821
  Serious: Yes (Death, Other)
  Sender: FDA-Public Use
  Company Number: US-BAXTER-2015BAX030373

PATIENT
  Age: 79 Year
  Sex: Male
  Weight: 94 kg

DRUGS (10)
  1. FUROSEMIDE. [Concomitant]
     Active Substance: FUROSEMIDE
     Indication: CARDIOMYOPATHY
     Route: 048
     Dates: start: 20150204
  2. LOSARTAN [Concomitant]
     Active Substance: LOSARTAN
     Indication: CARDIOMYOPATHY
     Route: 048
     Dates: start: 20140514
  3. CELLTOP 50 MG, CAPSULE [Suspect]
     Active Substance: ETOPOSIDE
     Indication: LYMPHOMA
     Dosage: INFUSED DAY 1, EVERY 6 HOURS DAY 2 AND DAY 3 OF 21 DAY CYCLE
     Route: 048
     Dates: start: 20150325
  4. RITUXIMAB [Suspect]
     Active Substance: RITUXIMAB
     Indication: LYMPHOMA
     Dosage: (STUDY DRUG) CYCLE 1, DAY (-) 7, DAY 0, DAY 7, AND DAY 14
     Route: 042
     Dates: start: 20141105, end: 20141126
  5. PREDNISONE. [Suspect]
     Active Substance: PREDNISONE
     Indication: LYMPHOMA
     Dosage: DAYS 1-5 OF 21 DAY CYCLE
     Route: 048
     Dates: start: 20150325
  6. CYCLOPHOSPHAMIDE FOR INJECTION, USP [Suspect]
     Active Substance: CYCLOPHOSPHAMIDE
     Indication: LYMPHOMA
     Route: 017
     Dates: start: 20150325
  7. OMEPRAZOLE. [Suspect]
     Active Substance: OMEPRAZOLE
     Indication: GASTROOESOPHAGEAL REFLUX DISEASE
     Route: 048
     Dates: start: 20150325
  8. RITUXIMAB [Suspect]
     Active Substance: RITUXIMAB
     Route: 017
     Dates: start: 20150325
  9. VINCRISTINE [Suspect]
     Active Substance: VINCRISTINE
     Indication: LYMPHOMA
     Route: 017
     Dates: start: 20150325
  10. ACICLOVIR [Suspect]
     Active Substance: ACYCLOVIR
     Indication: ANTIVIRAL PROPHYLAXIS
     Route: 048
     Dates: start: 20150325

REACTIONS (6)
  - Neutropenia [Unknown]
  - Atrial fibrillation [Unknown]
  - Diarrhoea [Unknown]
  - Hypophagia [Unknown]
  - Arrhythmia [Unknown]
  - Sepsis [Fatal]

NARRATIVE: CASE EVENT DATE: 20150331
